FAERS Safety Report 7526184-4 (Version None)
Quarter: 2011Q2

REPORT INFORMATION
  Report Type: 
  Country: None (occurrence: None)
  Receive Date: 20110606
  Receipt Date: 20100816
  Transmission Date: 20111010
  Serious: No
  Sender: FDA-Public Use
  Company Number: US-BRISTOL-MYERS SQUIBB COMPANY-15269152

PATIENT
  Sex: Male

DRUGS (1)
  1. EFAVIRENZ [Suspect]
     Route: 065

REACTIONS (1)
  - RASH [None]
